FAERS Safety Report 7640640-X (Version None)
Quarter: 2011Q3

REPORT INFORMATION
  Report Type: 
  Country: None (occurrence: None)
  Receive Date: 20110721
  Receipt Date: 20110711
  Transmission Date: 20111222
  Serious: Yes (Life-Threatening)
  Sender: FDA-Public Use
  Company Number: 2011AT000250

PATIENT
  Sex: Male

DRUGS (1)
  1. PSEUDOEPHEDRINE HCL [Suspect]
     Indication: PRODUCT USED FOR UNKNOWN INDICATION
     Dosage: 600-1500 MG, EPISODICALLY

REACTIONS (6)
  - HYPERGLYCAEMIA [None]
  - INTRACRANIAL ANEURYSM [None]
  - HAEMORRHAGIC STROKE [None]
  - HYPERTENSION [None]
  - FALL [None]
  - OVERDOSE [None]
